FAERS Safety Report 6330745-8 (Version None)
Quarter: 2009Q3

REPORT INFORMATION
  Report Type: 
  Country: None (occurrence: None)
  Receive Date: 20090827
  Receipt Date: 20090820
  Transmission Date: 20100115
  Serious: Yes (Other)
  Sender: FDA-Public Use
  Company Number: DE-B.I. PHARMACEUTICALS,INC./RIDGEFIELD-2009-DE-05517DE

PATIENT
  Sex: Female
  Weight: 80 kg

DRUGS (4)
  1. CATAPRES [Suspect]
     Dosage: 4 ANZ
     Route: 048
  2. NEXIUM [Suspect]
     Dosage: 1 ANZ
     Route: 048
  3. ORFIRIL [Suspect]
     Dosage: 2 ANZ
     Route: 048
  4. RIVOTRIL [Suspect]
     Dosage: 3 ANZ
     Route: 048

REACTIONS (3)
  - DRUG ABUSE [None]
  - FATIGUE [None]
  - OVERDOSE [None]
